FAERS Safety Report 13098369 (Version 1)
Quarter: 2017Q1

REPORT INFORMATION
  Report Type: Spontaneous
  Country: JP (occurrence: JP)
  Receive Date: 20170109
  Receipt Date: 20170109
  Transmission Date: 20170428
  Serious: Yes (Other)
  Sender: FDA-Public Use
  Company Number: JP-ELI_LILLY_AND_COMPANY-JP201701000844

PATIENT

DRUGS (3)
  1. IRINOTECAN [Suspect]
     Active Substance: IRINOTECAN
     Indication: COLORECTAL CANCER METASTATIC
     Dosage: 150 MG/M2, OTHER
     Route: 042
  2. ERBITUX [Suspect]
     Active Substance: CETUXIMAB
     Indication: COLORECTAL CANCER METASTATIC
     Dosage: 500 MG/M2, OTHER
     Route: 042
  3. ERBITUX [Suspect]
     Active Substance: CETUXIMAB
     Indication: K-RAS GENE MUTATION
     Dosage: 250 MG/M2, WEEKLY (1/W)
     Route: 042

REACTIONS (1)
  - Neutropenia [Unknown]
